FAERS Safety Report 20833872 (Version 13)
Quarter: 2025Q1

REPORT INFORMATION
  Report Type: Spontaneous
  Country: US (occurrence: US)
  Receive Date: 20220516
  Receipt Date: 20250327
  Transmission Date: 20250409
  Serious: Yes (Other)
  Sender: PFIZER
  Company Number: US-PFIZER INC-202101242508

PATIENT
  Age: 81 Year
  Sex: Female

DRUGS (4)
  1. BRAFTOVI [Suspect]
     Active Substance: ENCORAFENIB
     Indication: Malignant melanoma
     Dates: start: 2019
  2. BRAFTOVI [Suspect]
     Active Substance: ENCORAFENIB
     Dosage: 225 MG, DAILY (TAKE THREE 75MG CAPSULES EQUAL TO 225 MG)
     Route: 048
     Dates: end: 202501
  3. MEKTOVI [Suspect]
     Active Substance: BINIMETINIB
     Indication: Malignant melanoma
     Dates: start: 2019
  4. MEKTOVI [Suspect]
     Active Substance: BINIMETINIB
     Dosage: 30 MG, 2X/DAY (TAKE TWO 15MG TABS EQUAL TO 30 MG TWICE DAILY EVERY 12 HOURS)
     Route: 048
     Dates: end: 202501

REACTIONS (7)
  - Malignant melanoma [Unknown]
  - Malignant neoplasm progression [Unknown]
  - Ulcer haemorrhage [Unknown]
  - Hypertonic bladder [Unknown]
  - Memory impairment [Unknown]
  - COVID-19 [Recovered/Resolved]
  - Alopecia [Unknown]
